FAERS Safety Report 7325020-9 (Version None)
Quarter: 2011Q1

REPORT INFORMATION
  Report Type: 
  Country: None (occurrence: None)
  Receive Date: 20110301
  Receipt Date: 20110106
  Transmission Date: 20110831
  Serious: Yes (Hospitalization, Other)
  Sender: FDA-Public Use
  Company Number: US-BAYER-2011-002781

PATIENT
  Sex: Male

DRUGS (1)
  1. MAGNEVIST [Suspect]

REACTIONS (1)
  - ANAPHYLACTIC REACTION [None]
